FAERS Safety Report 19820293 (Version 2)
Quarter: 2021Q3

REPORT INFORMATION
  Report Type: Spontaneous
  Country: JP (occurrence: JP)
  Receive Date: 20210913
  Receipt Date: 20210929
  Transmission Date: 20211014
  Serious: Yes (Other)
  Sender: FDA-Public Use
  Company Number: JP-TAKEDA-2021TEU007833

PATIENT
  Age: 10 Decade
  Sex: Female

DRUGS (1)
  1. METLIGINE [Suspect]
     Active Substance: MIDODRINE HYDROCHLORIDE
     Indication: PRODUCT USED FOR UNKNOWN INDICATION
     Dosage: UNK
     Route: 048

REACTIONS (2)
  - Pseudoaldosteronism [Recovering/Resolving]
  - Hypokalaemia [Recovering/Resolving]
